FAERS Safety Report 16236612 (Version 4)
Quarter: 2019Q2

REPORT INFORMATION
  Report Type: Report from Study
  Country: None (occurrence: GB)
  Receive Date: 20190425
  Receipt Date: 20190611
  Transmission Date: 20190711
  Serious: Yes (Hospitalization)
  Sender: FDA-Public Use
  Company Number: GB-ABBVIE-19K-167-2639751-00

PATIENT
  Age: 52 Year
  Sex: Female
  Weight: 86 kg

DRUGS (2)
  1. HUMIRA [Suspect]
     Active Substance: ADALIMUMAB
     Indication: ANKYLOSING SPONDYLITIS
     Route: 058
     Dates: start: 201703, end: 20181214
  2. HUMIRA [Suspect]
     Active Substance: ADALIMUMAB
     Route: 058

REACTIONS (8)
  - Cholecystitis acute [Unknown]
  - Hepatobiliary procedural complication [Unknown]
  - Bile duct stone [Unknown]
  - Pancreatitis [Unknown]
  - Gamma-glutamyltransferase abnormal [Unknown]
  - Gallbladder disorder [Unknown]
  - C-reactive protein increased [Unknown]
  - Gastric mucosal hypertrophy [Unknown]

NARRATIVE: CASE EVENT DATE: 20190503
